FAERS Safety Report 14628188 (Version 1)
Quarter: 2018Q1

REPORT INFORMATION
  Report Type: Spontaneous
  Country: US (occurrence: US)
  Receive Date: 20180312
  Receipt Date: 20180312
  Transmission Date: 20180509
  Serious: No
  Sender: FDA-Public Use
  Company Number: US-ALLERGAN-1735216US

PATIENT
  Age: 79 Year
  Sex: Female

DRUGS (4)
  1. ESTRACE [Suspect]
     Active Substance: ESTRADIOL
     Indication: HYPERTONIC BLADDER
     Dosage: 2-3 TIMES WEEKLY
     Route: 067
     Dates: start: 20170705, end: 20170712
  2. XARELTO [Concomitant]
     Active Substance: RIVAROXABAN
     Indication: ATRIAL FIBRILLATION
     Dosage: 10 MG, QD
  3. PANTOPRAZOLE [Concomitant]
     Active Substance: PANTOPRAZOLE
     Indication: GASTROOESOPHAGEAL REFLUX DISEASE
     Dosage: UNK
  4. VITAMIN D [Concomitant]
     Active Substance: CHOLECALCIFEROL
     Dosage: UNK

REACTIONS (10)
  - Pain [Recovered/Resolved]
  - Haemorrhage [Unknown]
  - Hyperhidrosis [Unknown]
  - Cystitis [Unknown]
  - Off label use [Unknown]
  - Nausea [Unknown]
  - Urinary tract discomfort [Recovered/Resolved]
  - Abdominal pain upper [Recovered/Resolved]
  - Vaginal infection [Unknown]
  - Vulvovaginal discomfort [Recovered/Resolved]

NARRATIVE: CASE EVENT DATE: 2017
